FAERS Safety Report 10163215 (Version 1)
Quarter: 2014Q2

REPORT INFORMATION
  Report Type: Spontaneous
  Country: SK (occurrence: SK)
  Receive Date: 20140509
  Receipt Date: 20140509
  Transmission Date: 20141212
  Serious: Yes (Other)
  Sender: FDA-Public Use
  Company Number: SK-GLAXOSMITHKLINE-B0981615A

PATIENT
  Age: 48 Year
  Sex: Female

DRUGS (11)
  1. BENLYSTA [Suspect]
     Indication: SYSTEMIC LUPUS ERYTHEMATOSUS
     Dosage: 520MG PER DAY
     Route: 065
     Dates: start: 20130301
  2. PREDNISON [Concomitant]
     Dosage: 6MG PER DAY
  3. AZATHIOPRINE [Concomitant]
     Dosage: 50MG PER DAY
  4. CYCLOPHOSPHAMIDE [Concomitant]
  5. HYDROXYCHLOROQUINE [Concomitant]
     Dosage: 200MG PER DAY
  6. UNKNOWN DRUG [Concomitant]
     Dosage: 35MG PER DAY
  7. ALPHA D3 [Concomitant]
     Dosage: 1UG FIVE TIMES PER WEEK
  8. HELICID [Concomitant]
     Dosage: 20MG PER DAY
  9. TICLOPIDIN [Concomitant]
     Dosage: 500MG PER DAY
  10. ACIDUM FOLICUM [Concomitant]
     Dosage: 2TAB PER DAY
  11. UNKNOWN [Concomitant]

REACTIONS (8)
  - Polyarthritis [Unknown]
  - Inflammation [Recovered/Resolved]
  - Arthropod bite [Recovered/Resolved]
  - Fatigue [Recovered/Resolved]
  - Pyrexia [Unknown]
  - Impaired healing [Recovered/Resolved]
  - Performance status decreased [Unknown]
  - Upper respiratory tract infection [Unknown]
